FAERS Safety Report 17667364 (Version 1)
Quarter: 2020Q2

REPORT INFORMATION
  Report Type: Spontaneous
  Country: NL (occurrence: NL)
  Receive Date: 20200414
  Receipt Date: 20200414
  Transmission Date: 20200713
  Serious: Yes (Hospitalization)
  Sender: FDA-Public Use
  Company Number: NL-MYLANLABS-2020M1037541

PATIENT
  Sex: Male
  Weight: 90 kg

DRUGS (15)
  1. SALBUTAMOL [Concomitant]
     Active Substance: ALBUTEROL
     Dosage: INHALATIEPOEDER, 200 ?G/DOSIS (MICROGRAM PER DOSIS)
  2. ALLOPURINOL. [Concomitant]
     Active Substance: ALLOPURINOL
     Dosage: TABLET, 100 MG (MILLIGRAM)
  3. ALFACALCIDOL [Concomitant]
     Active Substance: ALFACALCIDOL
     Dosage: CAPSULE, 0,25 ?G (MICROGRAM)
  4. CARVEDILOL. [Concomitant]
     Active Substance: CARVEDILOL
     Dosage: TABLET, 25 MG (MILLIGRAM)
  5. LANOXIN [Concomitant]
     Active Substance: DIGOXIN
     Dosage: TABLET, 62,5 ?G (MICROGRAM)
  6. EPLERENONE. [Concomitant]
     Active Substance: EPLERENONE
     Dosage: TABLET, 25 MG (MILLIGRAM)
  7. PREDNISOLON                        /00016201/ [Concomitant]
     Active Substance: PREDNISOLONE
     Dosage: TABLET, 5 MG (MILLIGRAM)
  8. LEVOMENTHOL [Concomitant]
     Active Substance: LEVOMENTHOL
     Dosage: CREME, 10 MG/G (MILLIGRAM PER GRAM)
  9. APIXABAN [Concomitant]
     Active Substance: APIXABAN
     Dosage: TABLET, 2,5 MG (MILLIGRAM)
  10. ATORVASTATINE                      /01326101/ [Concomitant]
     Active Substance: ATORVASTATIN
     Dosage: TABLET, 10 MG (MILLIGRAM)
  11. PANTOPRAZOLE [Suspect]
     Active Substance: PANTOPRAZOLE
     Indication: PROPHYLAXIS
     Dosage: 3 X PER DAG 1 STUK
     Dates: start: 201910, end: 20200303
  12. FAMOTIDINE. [Concomitant]
     Active Substance: FAMOTIDINE
     Dosage: TABLET, 20 MG (MILLIGRAM)
  13. SACUBITRIL W/VALSARTAN [Concomitant]
     Active Substance: SACUBITRIL\VALSARTAN
     Dosage: TABLET, 97/103 MG (MILLIGRAM)
  14. CLOBETASOL [Concomitant]
     Active Substance: CLOBETASOL
     Dosage: CREME, 0,5 MG/G (MILLIGRAM PER GRAM)
  15. TRIAMCINOLONACETONIDE [Concomitant]
     Active Substance: TRIAMCINOLONE ACETONIDE
     Dosage: CREME, 1 MG/G (MILLIGRAM PER GRAM)

REACTIONS (2)
  - Hypomagnesaemia [Recovered/Resolved]
  - Hypocalcaemia [Recovered/Resolved]
